FAERS Safety Report 16568787 (Version 1)
Quarter: 2019Q3

REPORT INFORMATION
  Report Type: Spontaneous
  Country: AU (occurrence: AU)
  Receive Date: 20190713
  Receipt Date: 20190713
  Transmission Date: 20191004
  Serious: Yes (Hospitalization, Disabling)
  Sender: FDA-Public Use
  Company Number: PHHY2018AU173024

PATIENT
  Age: 26 Year
  Sex: Female

DRUGS (8)
  1. PREDNISOLONE. [Concomitant]
     Active Substance: PREDNISOLONE
     Indication: STILL^S DISEASE
     Dosage: 25 MG, UNK
     Route: 065
  2. ILARIS [Suspect]
     Active Substance: CANAKINUMAB
     Indication: STILL^S DISEASE
     Dosage: 150 MG, QW (8 WEEKLY)
     Route: 058
     Dates: start: 20190321
  3. LEFLUNOMIDE. [Concomitant]
     Active Substance: LEFLUNOMIDE
     Indication: STILL^S DISEASE
     Dosage: 20 MG, QD
     Route: 048
  4. PREDNISOLONE. [Concomitant]
     Active Substance: PREDNISOLONE
     Dosage: 10 MG, QD
     Route: 048
  5. TOCILIZUMAB. [Suspect]
     Active Substance: TOCILIZUMAB
     Indication: STILL^S DISEASE
     Dosage: 480 MG, Q4W
     Route: 042
  6. PREDNISOLONE. [Concomitant]
     Active Substance: PREDNISOLONE
     Dosage: 50 MG, QD
     Route: 048
  7. METHOTREXATE. [Suspect]
     Active Substance: METHOTREXATE
     Indication: STILL^S DISEASE
     Dosage: UNK
     Route: 065
  8. LEFLUNOMIDE. [Concomitant]
     Active Substance: LEFLUNOMIDE
     Dosage: 10 MG, QD
     Route: 048

REACTIONS (5)
  - Condition aggravated [Not Recovered/Not Resolved]
  - Therapy non-responder [Unknown]
  - Lower respiratory tract infection [Recovered/Resolved]
  - Still^s disease [Recovering/Resolving]
  - Therapeutic product effect incomplete [Unknown]

NARRATIVE: CASE EVENT DATE: 20190501
